FAERS Safety Report 6661541-X (Version None)
Quarter: 2010Q1

REPORT INFORMATION
  Report Type: 
  Country: None (occurrence: None)
  Receive Date: 20100329
  Receipt Date: 20100319
  Transmission Date: 20100710
  Serious: Yes (Life-Threatening, Other)
  Sender: FDA-Public Use
  Company Number: DSA_42671_2010

PATIENT
  Sex: Female

DRUGS (4)
  1. XENAZINE [Suspect]
     Indication: TOURETTE'S DISORDER
     Dosage: (12.5 MG), (12.5 MG BID), (12.5 MG TID), (25 MG BID)
     Dates: start: 20100128, end: 20100203
  2. XENAZINE [Suspect]
     Indication: TOURETTE'S DISORDER
     Dosage: (12.5 MG), (12.5 MG BID), (12.5 MG TID), (25 MG BID)
     Dates: start: 20100204, end: 20100210
  3. XENAZINE [Suspect]
     Indication: TOURETTE'S DISORDER
     Dosage: (12.5 MG), (12.5 MG BID), (12.5 MG TID), (25 MG BID)
     Dates: start: 20100211, end: 20100217
  4. XENAZINE [Suspect]
     Indication: TOURETTE'S DISORDER
     Dosage: (12.5 MG), (12.5 MG BID), (12.5 MG TID), (25 MG BID)
     Dates: start: 20100218

REACTIONS (1)
  - ANAPHYLACTIC REACTION [None]
